FAERS Safety Report 24443950 (Version 2)
Quarter: 2024Q4

REPORT INFORMATION
  Report Type: Spontaneous
  Country: US (occurrence: US)
  Receive Date: 20241016
  Receipt Date: 20241203
  Transmission Date: 20250114
  Serious: No
  Sender: SCIEGEN PHARMACEUTICALS INC
  Company Number: US-SCIEGENP-2024SCSPO00375

PATIENT
  Age: 66 Year
  Sex: Male
  Weight: 200 kg

DRUGS (1)
  1. GABAPENTIN [Suspect]
     Active Substance: GABAPENTIN
     Indication: Petit mal epilepsy
     Dosage: MORNING, AFTERNOON, AND NIGHT
     Route: 065
     Dates: start: 20240620

REACTIONS (6)
  - Feeding disorder [Recovered/Resolved]
  - Mood swings [Recovered/Resolved]
  - Depression [Recovered/Resolved]
  - Drug ineffective [Unknown]
  - Product quality issue [Unknown]
  - Product prescribing issue [Unknown]

NARRATIVE: CASE EVENT DATE: 20240911
